FAERS Safety Report 6346732-X (Version None)
Quarter: 2009Q3

REPORT INFORMATION
  Report Type: 
  Country: None (occurrence: None)
  Receive Date: 20090904
  Receipt Date: 20090821
  Transmission Date: 20100115
  Serious: Yes (Hospitalization)
  Sender: FDA-Public Use
  Company Number: DSJ-2009-09142

PATIENT
  Age: 69 Year
  Sex: Female
  Weight: 46 kg

DRUGS (4)
  1. OLMETEC (OLMESARTAN MEDOXOMIL) (TABLET) (OLMESARTAN MEDOXOMIL) [Suspect]
     Indication: HYPERTENSION
     Dosage: 20 MG (20 MG,1 IN 1 D),PER ORAL
     Route: 048
     Dates: start: 20090407, end: 20090604
  2. MEVALOTIN (PRAVASTATIN SODIUM) (TABLET) (PRAVASTATIN SODIUM) [Concomitant]
  3. SINGULAIR (MONTELUKAST) (TABLET) (MONTELUKAST) [Concomitant]
  4. RIZE (CLOTIAZEPAM) (TABLET) (CLOTIAZEPAM) [Concomitant]

REACTIONS (6)
  - BLOOD CREATINE PHOSPHOKINASE INCREASED [None]
  - DECREASED APPETITE [None]
  - HYPONATRAEMIA [None]
  - HYPOPHAGIA [None]
  - VOMITING [None]
  - WEIGHT DECREASED [None]
